FAERS Safety Report 5704785-3 (Version None)
Quarter: 2008Q2

REPORT INFORMATION
  Report Type: 
  Country: None (occurrence: None)
  Receive Date: 20080414
  Receipt Date: 20080404
  Transmission Date: 20081010
  Serious: Yes (Hospitalization, Other)
  Sender: FDA-Public Use
  Company Number: JP-PFIZER INC-2008004200

PATIENT
  Sex: Female

DRUGS (7)
  1. NORVASC [Suspect]
     Indication: HYPERTENSION
     Route: 048
  2. DEPAS [Suspect]
     Indication: INSOMNIA
     Route: 048
  3. DEPAS [Suspect]
     Indication: ANXIETY
  4. DIOVAN [Suspect]
     Indication: HYPERTENSION
     Route: 048
  5. MAINTATE [Suspect]
     Indication: HYPERTENSION
     Route: 048
  6. LOCHOL [Suspect]
     Indication: LIPIDS ABNORMAL
     Route: 048
     Dates: start: 20050725, end: 20080208
  7. ASPIRIN [Suspect]
     Indication: LACUNAR INFARCTION
     Route: 048
     Dates: start: 20060912, end: 20080104

REACTIONS (4)
  - EPISTAXIS [None]
  - HAEMOPTYSIS [None]
  - HAEMORRHAGE SUBCUTANEOUS [None]
  - THROMBOCYTOPENIA [None]
